FAERS Safety Report 7968970-2 (Version None)
Quarter: 2011Q4

REPORT INFORMATION
  Report Type: 
  Country: None (occurrence: None)
  Receive Date: 20111208
  Receipt Date: 20111124
  Transmission Date: 20120403
  Serious: Yes (Other)
  Sender: FDA-Public Use
  Company Number: 1000025941

PATIENT
  Age: 43 Year
  Sex: Female

DRUGS (3)
  1. LEXAPRO [Suspect]
     Indication: DEPRESSIVE SYMPTOM
     Dosage: 10 (10 MG, 1 IN 1 D), ORAL
     Route: 048
     Dates: start: 20111116, end: 20111116
  2. DOGMATYL (SULPIRIDE) [Concomitant]
  3. MILNACIPRAN HYDROCHLORIDE [Concomitant]

REACTIONS (1)
  - ANAPHYLACTIC SHOCK [None]
